FAERS Safety Report 4666891-4 (Version None)
Quarter: 2005Q2

REPORT INFORMATION
  Report Type: 
  Country: None (occurrence: None)
  Receive Date: 20050518
  Receipt Date: 20040520
  Transmission Date: 20051028
  Serious: Yes (Hospitalization)
  Sender: FDA-Public Use
  Company Number: 2004214559US

PATIENT
  Age: 21 Year
  Sex: Female
  Weight: 47.6 kg

DRUGS (2)
  1. DEPO-PROVERA [Suspect]
     Dosage: 150 MG, 1ST INJECTION, INTRAMUSCULAR;  150 MG, MOST RECENT INJECTION, INTRAMUSCULAR
     Route: 030
     Dates: start: 20030507, end: 20030507
  2. DEPO-PROVERA [Suspect]
     Dosage: 150 MG, 1ST INJECTION, INTRAMUSCULAR;  150 MG, MOST RECENT INJECTION, INTRAMUSCULAR
     Route: 030
     Dates: start: 20040507, end: 20040507

REACTIONS (1)
  - HYPERSENSITIVITY [None]
